FAERS Safety Report 17454050 (Version 2)
Quarter: 2020Q1

REPORT INFORMATION
  Report Type: Spontaneous
  Country: CH (occurrence: CH)
  Receive Date: 20200224
  Receipt Date: 20200310
  Transmission Date: 20200409
  Serious: Yes (Other)
  Sender: FDA-Public Use
  Company Number: CH-BAXTER-2020BAX003494

PATIENT
  Age: 55 Year
  Sex: Female

DRUGS (7)
  1. ONDANSETRON [Concomitant]
     Active Substance: ONDANSETRON
     Indication: PRODUCT USED FOR UNKNOWN INDICATION
     Route: 065
  2. HOLOXAN 2 G [Suspect]
     Active Substance: IFOSFAMIDE
     Indication: METASTASES TO LYMPH NODES
  3. DOXORUBICIN [Concomitant]
     Active Substance: DOXORUBICIN
     Indication: METASTASES TO LYMPH NODES
  4. HOLOXAN 2 G [Suspect]
     Active Substance: IFOSFAMIDE
     Indication: METASTASES TO LUNG
     Dosage: 5 DAYS CHEMOTHERAPY CYCLE
     Route: 065
  5. DILTIAZEM. [Suspect]
     Active Substance: DILTIAZEM
     Indication: ATRIAL FIBRILLATION
     Dosage: UP TO 10MG/H
     Route: 042
  6. DOXORUBICIN [Concomitant]
     Active Substance: DOXORUBICIN
     Indication: METASTASES TO LUNG
     Dosage: 5 DAYS CHEMOTHERAPY CYCLE
     Route: 065
  7. UROMITEXAN [Concomitant]
     Active Substance: MESNA
     Indication: PRODUCT USED FOR UNKNOWN INDICATION
     Route: 065

REACTIONS (3)
  - Neurotoxicity [Recovered/Resolved]
  - Acute psychosis [Recovered/Resolved]
  - Drug interaction [Unknown]
